FAERS Safety Report 16514051 (Version 2)
Quarter: 2021Q4

REPORT INFORMATION
  Report Type: Report from Study
  Country: DE (occurrence: DE)
  Receive Date: 20190701
  Receipt Date: 20211202
  Transmission Date: 20220303
  Serious: Yes (Death, Other)
  Sender: FDA-Public Use
  Company Number: DE-CELLTRION INC.-2019DE022425

PATIENT

DRUGS (6)
  1. RITUXIMAB [Suspect]
     Active Substance: RITUXIMAB
     Indication: Diffuse large B-cell lymphoma refractory
     Dosage: 136 MG, QD
     Route: 042
     Dates: start: 20190322, end: 20190322
  2. POLATUZUMAB VEDOTIN [Suspect]
     Active Substance: POLATUZUMAB VEDOTIN
     Indication: Diffuse large B-cell lymphoma refractory
     Dosage: 142 MG, 1ST CYCLE
     Route: 042
     Dates: start: 20190201, end: 20190201
  3. POLATUZUMAB VEDOTIN [Suspect]
     Active Substance: POLATUZUMAB VEDOTIN
     Dosage: 135 MG, 2ND CYCLE (ON 29/JUL/2019, HE RECEIVED LAST ADMINISTRATION OF POLATUZUMAB VEDOTIN)
     Route: 042
     Dates: start: 20190222, end: 20190222
  4. POLATUZUMAB VEDOTIN [Suspect]
     Active Substance: POLATUZUMAB VEDOTIN
     Dosage: ON 29/JUL/2019, HE RECEIVED LAST ADMINISTRATION OF POLATUZUMAB VEDOTIN
     Dates: start: 20190729, end: 20190729
  5. BENDAMUSTINE [Suspect]
     Active Substance: BENDAMUSTINE
     Indication: Product used for unknown indication
     Route: 065
  6. TROFOSFAMIDE [Suspect]
     Active Substance: TROFOSFAMIDE
     Indication: Product used for unknown indication
     Route: 065

REACTIONS (5)
  - Acute kidney injury [Fatal]
  - Leukopenia [Recovered/Resolved]
  - Neutropenia [Unknown]
  - Diarrhoea [Recovering/Resolving]
  - Underdose [Unknown]

NARRATIVE: CASE EVENT DATE: 20190211
